FAERS Safety Report 12771921 (Version 1)
Quarter: 2016Q3

REPORT INFORMATION
  Report Type: Spontaneous
  Country: HR (occurrence: HR)
  Receive Date: 20160922
  Receipt Date: 20160922
  Transmission Date: 20161109
  Serious: Yes (Other)
  Sender: FDA-Public Use
  Company Number: HR-ASTRAZENECA-2016SE97964

PATIENT
  Age: 564 Month
  Sex: Female

DRUGS (4)
  1. BRILIQUE [Suspect]
     Active Substance: TICAGRELOR
     Indication: MYOCARDIAL INFARCTION
     Route: 048
     Dates: start: 20151202, end: 20160705
  2. ASPIRIN PROTECT [Concomitant]
     Active Substance: ASPIRIN
     Indication: MYOCARDIAL INFARCTION
     Route: 048
     Dates: start: 20151202
  3. PREDUCTAL MR [Concomitant]
     Active Substance: TRIMETAZIDINE DIHYDROCHLORIDE
     Route: 048
     Dates: start: 20151202
  4. LESCOL XL [Concomitant]
     Active Substance: FLUVASTATIN SODIUM
     Indication: HYPERLIPIDAEMIA
     Route: 048
     Dates: start: 20160119

REACTIONS (8)
  - Petechiae [Unknown]
  - Dyspnoea [Unknown]
  - Malaise [Unknown]
  - Menstruation irregular [Unknown]
  - Dyspnoea exertional [Unknown]
  - Contusion [Unknown]
  - Menorrhagia [Unknown]
  - Haematoma [Unknown]

NARRATIVE: CASE EVENT DATE: 201606
